FAERS Safety Report 6346480-6 (Version None)
Quarter: 2009Q3

REPORT INFORMATION
  Report Type: 
  Country: None (occurrence: None)
  Receive Date: 20090909
  Receipt Date: 20090831
  Transmission Date: 20100115
  Serious: Yes (Other)
  Sender: FDA-Public Use
  Company Number: NL-BAXTER-2009BH013414

PATIENT
  Age: 21 Year
  Sex: Female
  Weight: 67 kg

DRUGS (1)
  1. ENDOXAN BAXTER [Suspect]
     Indication: MEDULLOBLASTOMA
     Dosage: 1800MG
     Route: 042
     Dates: start: 20090402, end: 20090705

REACTIONS (1)
  - HYPONATRAEMIA [None]
